FAERS Safety Report 5063222-5 (Version None)
Quarter: 2006Q3

REPORT INFORMATION
  Report Type: 
  Country: None (occurrence: None)
  Receive Date: 20060724
  Receipt Date: 20060724
  Transmission Date: 20061208
  Serious: Yes (Life-Threatening, Hospitalization, Disabling)
  Sender: FDA-Public Use
  Company Number: None

PATIENT
  Age: 52 Year
  Sex: Female
  Weight: 68 kg

DRUGS (1)
  1. POLYGAM [Suspect]
     Indication: GUILLAIN-BARRE SYNDROME
     Dates: start: 20060703, end: 20060708

REACTIONS (1)
  - PULMONARY EMBOLISM [None]
